FAERS Safety Report 15419389 (Version 2)
Quarter: 2018Q3

REPORT INFORMATION
  Report Type: Spontaneous
  Country: US (occurrence: US)
  Receive Date: 20180924
  Receipt Date: 20180927
  Transmission Date: 20181010
  Serious: No
  Sender: FDA-Public Use
  Company Number: US-PFIZER INC-2018380926

PATIENT
  Age: 68 Year
  Sex: Male
  Weight: 83.1 kg

DRUGS (10)
  1. LYRICA [Suspect]
     Active Substance: PREGABALIN
     Indication: FIBROMYALGIA
     Dosage: 75 MG, 1X/DAY (ONCE BY MOUTH DAILY)
     Route: 048
  2. LORAZEPAM. [Concomitant]
     Active Substance: LORAZEPAM
     Indication: ABDOMINAL DISCOMFORT
     Dosage: 2 MG, DAILY (TWO 1 MG TABLETS)
     Route: 048
  3. LYRICA [Suspect]
     Active Substance: PREGABALIN
     Indication: BACK PAIN
  4. AMITRIPTYLINE HCL [Concomitant]
     Active Substance: AMITRIPTYLINE
     Indication: SLEEP DISORDER
     Dosage: UNK UNK, 1X/DAY (50 MG TABLETS, ONE AND A HALF AT BEDTIME BY MOUTH)
     Route: 048
  5. CRESTOR [Suspect]
     Active Substance: ROSUVASTATIN CALCIUM
     Indication: BLOOD CHOLESTEROL DECREASED
     Dosage: 10 MG, 1X/DAY (AT BEDTIME)
     Route: 048
     Dates: start: 2001
  6. HYDROCODONE [Concomitant]
     Active Substance: HYDROCODONE
     Indication: BACK PAIN
     Dosage: UNK, 3X/DAY (10?35 TABLETS)
     Route: 048
  7. LISINOPRIL. [Concomitant]
     Active Substance: LISINOPRIL
     Indication: HYPERTENSION
     Dosage: 10 MG, DAILY (ONE A DAY TABLETS)
     Route: 048
     Dates: start: 2000
  8. NIACIN. [Concomitant]
     Active Substance: NIACIN
     Indication: BLOOD TRIGLYCERIDES DECREASED
     Dosage: 1000 MG, 1X/DAY (AT BEDTIME)
     Route: 048
  9. METOPROLOL. [Concomitant]
     Active Substance: METOPROLOL
     Indication: HYPOTENSION
     Dosage: 50 MG, 1X/DAY (AT NIGHT)
     Route: 048
     Dates: start: 2001
  10. CYCLOBENZAPRINE. [Concomitant]
     Active Substance: CYCLOBENZAPRINE
     Indication: MUSCLE SPASMS
     Dosage: 10 MG, AS NEEDED (UP TO 3 TIMES A DAY AS NEEDED)
     Route: 048

REACTIONS (8)
  - Dermatitis [Unknown]
  - Pain of skin [Unknown]
  - Back disorder [Unknown]
  - Dizziness [Recovering/Resolving]
  - Hyperaesthesia [Unknown]
  - Condition aggravated [Unknown]
  - Myalgia [Unknown]
  - Back pain [Unknown]
